FAERS Safety Report 12693731 (Version 9)
Quarter: 2017Q1

REPORT INFORMATION
  Report Type: Spontaneous
  Country: US (occurrence: US)
  Receive Date: 20160829
  Receipt Date: 20170208
  Transmission Date: 20170428
  Serious: Yes (Hospitalization)
  Sender: FDA-Public Use
  Company Number: US-PFIZER INC-2016390864

PATIENT
  Age: 55 Year
  Sex: Female
  Weight: 48.99 kg

DRUGS (13)
  1. COMPAZINE [Concomitant]
     Active Substance: PROCHLORPERAZINE MALEATE
     Dosage: UNK
  2. LEVOTHYROXINE SODIUM. [Concomitant]
     Active Substance: LEVOTHYROXINE SODIUM
     Indication: THYROID DISORDER
     Dosage: 25 UG, 1X/DAY
     Dates: start: 201612
  3. CALCIUM/VITAMIN D3 [Concomitant]
     Dosage: UNK
  4. SUTENT [Suspect]
     Active Substance: SUNITINIB MALATE
     Dosage: 25 MG, CYCLIC (DAILY FOR 28 DAYS AND THEN OFF FOR 14 DAYS)
     Route: 048
     Dates: start: 201604, end: 20161222
  5. CLARITIN [Concomitant]
     Active Substance: LORATADINE
     Dosage: UNK
  6. MAG G [Concomitant]
     Active Substance: MAGNESIUM GLUCONATE
     Indication: SUPPLEMENTATION THERAPY
     Dosage: 500 MG, 2X/DAY
     Dates: start: 201412
  7. SUTENT [Suspect]
     Active Substance: SUNITINIB MALATE
     Dosage: 37.5 MG, CYCLIC (ONCE A DAY 4 WEEKS ON 2 WEEKS OFF)
     Route: 048
     Dates: start: 20160923
  8. ZOFRAN [Concomitant]
     Active Substance: ONDANSETRON HYDROCHLORIDE
     Dosage: UNK
  9. SUTENT [Suspect]
     Active Substance: SUNITINIB MALATE
     Indication: PANCREATIC NEUROENDOCRINE TUMOUR METASTATIC
     Dosage: 37.5 MG, CYCLIC (28 DAYS ON/14 DAYS OFF)
     Dates: start: 20160401
  10. GABAPENTIN. [Concomitant]
     Active Substance: GABAPENTIN
     Indication: NEUROPATHY PERIPHERAL
     Dosage: 600 MG, 1X/DAY
  11. CYMBALTA [Concomitant]
     Active Substance: DULOXETINE HYDROCHLORIDE
     Dosage: UNK
  12. FOLIC ACID. [Concomitant]
     Active Substance: FOLIC ACID
     Dosage: UNK
  13. TRAMADOL. [Concomitant]
     Active Substance: TRAMADOL
     Dosage: UNK

REACTIONS (31)
  - Pain in extremity [Not Recovered/Not Resolved]
  - Hyperkeratosis [Not Recovered/Not Resolved]
  - Insomnia [Unknown]
  - Thyroid disorder [Unknown]
  - Mental status changes [Unknown]
  - Oral pain [Not Recovered/Not Resolved]
  - Tenderness [Unknown]
  - Musculoskeletal pain [Not Recovered/Not Resolved]
  - Chromaturia [Unknown]
  - Tumour marker increased [Unknown]
  - Gait disturbance [Unknown]
  - Constipation [Unknown]
  - Activities of daily living impaired [Unknown]
  - Nausea [Not Recovered/Not Resolved]
  - Decreased appetite [Not Recovered/Not Resolved]
  - Pain [Recovering/Resolving]
  - Feeling abnormal [Unknown]
  - Abdominal pain upper [Unknown]
  - Dysgeusia [Not Recovered/Not Resolved]
  - Dyspepsia [Unknown]
  - White blood cell count decreased [Unknown]
  - Asthenia [Recovering/Resolving]
  - Malaise [Unknown]
  - Abdominal discomfort [Unknown]
  - Tongue biting [Unknown]
  - Muscular weakness [Recovering/Resolving]
  - Neoplasm progression [Unknown]
  - Fatigue [Recovering/Resolving]
  - Dry mouth [Unknown]
  - Gastroenteritis viral [Unknown]
  - Abdominal distension [Unknown]

NARRATIVE: CASE EVENT DATE: 201606
